FAERS Safety Report 18841768 (Version 1)
Quarter: 2021Q1

REPORT INFORMATION
  Report Type: Spontaneous
  Country: US (occurrence: US)
  Receive Date: 20210204
  Receipt Date: 20210204
  Transmission Date: 20210419
  Serious: No
  Sender: FDA-Public Use
  Company Number: US-LUPIN PHARMACEUTICALS INC.-2021-01079

PATIENT

DRUGS (1)
  1. MORPHINE [Suspect]
     Active Substance: MORPHINE
     Indication: DRUG WITHDRAWAL SYNDROME NEONATAL
     Dosage: UNK, EVERY 3 HOURS
     Route: 048

REACTIONS (1)
  - Off label use [Unknown]
